FAERS Safety Report 19470160 (Version 1)
Quarter: 2021Q2

REPORT INFORMATION
  Report Type: Spontaneous
  Country: US (occurrence: US)
  Receive Date: 20210629
  Receipt Date: 20210629
  Transmission Date: 20210717
  Serious: Yes (Hospitalization, Other)
  Sender: FDA-Public Use
  Company Number: US-009507513-2106USA006038

PATIENT
  Age: 64 Year
  Sex: Male

DRUGS (1)
  1. INTEGRILIN [Suspect]
     Active Substance: EPTIFIBATIDE
     Dosage: A BOLUS DOSE OF 17000 MICROGRAM

REACTIONS (1)
  - Immune thrombocytopenia [Recovered/Resolved]
